FAERS Safety Report 8330965-7 (Version None)
Quarter: 2012Q2

REPORT INFORMATION
  Report Type: 
  Country: None (occurrence: None)
  Receive Date: 20120502
  Receipt Date: 20120403
  Transmission Date: 20120825
  Serious: No
  Sender: FDA-Public Use
  Company Number: US-AMGEN-USASP2011001502

PATIENT
  Age: 50 Year
  Sex: Male
  Weight: 79.365 kg

DRUGS (5)
  1. SERZINE [Concomitant]
     Route: 048
  2. ASPIRIN [Concomitant]
     Dosage: 8 MG, QD
     Route: 048
  3. PROPECIA [Concomitant]
     Indication: ALOPECIA
     Dosage: 1 MG, UNK
     Route: 048
     Dates: start: 20110628
  4. ENBREL [Suspect]
     Indication: PSORIASIS
     Dosage: 50 MG, 2 TIMES/WK
     Route: 058
     Dates: start: 20101217, end: 20110726
  5. LIPITOR [Concomitant]
     Route: 048

REACTIONS (3)
  - PSORIASIS [None]
  - MADAROSIS [None]
  - EYELIDS PRURITUS [None]
